FAERS Safety Report 6756951-6 (Version None)
Quarter: 2010Q2

REPORT INFORMATION
  Report Type: 
  Country: None (occurrence: None)
  Receive Date: 20100604
  Receipt Date: 20100525
  Transmission Date: 20101027
  Serious: Yes (Other)
  Sender: FDA-Public Use
  Company Number: US-JNJCH-2010013036

PATIENT
  Age: 67 Year
  Sex: Female
  Weight: 51.7 kg

DRUGS (6)
  1. ROGAINE [Suspect]
     Indication: ALOPECIA
     Dosage: TEXT:ONCE A DAY, THEN EVERY OTHER DAY
     Route: 061
  2. MULTI-VITAMINS [Concomitant]
     Indication: VITAMIN SUPPLEMENTATION
     Dosage: TEXT:1X A DAY
     Route: 065
  3. CALTRATE [Concomitant]
     Indication: MINERAL SUPPLEMENTATION
     Dosage: TEXT:1X A DAY
     Route: 065
  4. LEXAPRO [Concomitant]
     Indication: DEPRESSION
     Dosage: TEXT:1X A DAY 10MG
     Route: 065
  5. LEVOXYL [Concomitant]
     Indication: HYPERTHYROIDISM
     Dosage: TEXT:1X A DAY
     Route: 065
  6. BENICAR [Concomitant]
     Indication: HYPERTENSION
     Dosage: TEXT:1X A DAY 20MG
     Route: 065

REACTIONS (3)
  - BREAST CALCIFICATIONS [None]
  - BREAST MASS [None]
  - UNDERDOSE [None]
